FAERS Safety Report 7469950-6 (Version None)
Quarter: 2011Q2

REPORT INFORMATION
  Report Type: 
  Country: None (occurrence: None)
  Receive Date: 20110510
  Receipt Date: 20110505
  Transmission Date: 20111010
  Serious: Yes (Hospitalization, Other)
  Sender: FDA-Public Use
  Company Number: FR-PFIZER INC-2011047614

PATIENT
  Age: 68 Year
  Sex: Male

DRUGS (1)
  1. LYRICA [Suspect]
     Indication: PHANTOM PAIN
     Dosage: 50 MG, 2X/DAY
     Dates: start: 20090601

REACTIONS (2)
  - OPTIC NEURITIS [None]
  - VISUAL ACUITY REDUCED [None]
